FAERS Safety Report 21384864 (Version 1)
Quarter: 2022Q3

REPORT INFORMATION
  Report Type: Spontaneous
  Country: US (occurrence: US)
  Receive Date: 20220928
  Receipt Date: 20220928
  Transmission Date: 20221027
  Serious: Yes (Other)
  Sender: FDA-Public Use
  Company Number: US-AMGEN-USASP2022165682

PATIENT

DRUGS (1)
  1. TRASTUZUMAB [Suspect]
     Active Substance: TRASTUZUMAB
     Indication: Endometrial adenocarcinoma
     Route: 065

REACTIONS (3)
  - Endometrial adenocarcinoma [Unknown]
  - Acquired gene mutation [Unknown]
  - Off label use [Unknown]
